FAERS Safety Report 13448919 (Version 1)
Quarter: 2017Q2

REPORT INFORMATION
  Report Type: Spontaneous
  Country: US (occurrence: US)
  Receive Date: 20170417
  Receipt Date: 20170417
  Transmission Date: 20170830
  Serious: No
  Sender: FDA-Public Use
  Company Number: US-SHIONOGI, INC-2017000116

PATIENT
  Age: 56 Year
  Sex: Female

DRUGS (5)
  1. OSPHENA [Suspect]
     Active Substance: OSPEMIFENE
     Indication: DYSPAREUNIA
  2. IBUPROFEN. [Concomitant]
     Active Substance: IBUPROFEN
     Indication: VULVOVAGINAL PAIN
  3. OSPHENA [Suspect]
     Active Substance: OSPEMIFENE
     Indication: VULVOVAGINAL BURNING SENSATION
  4. IBUPROFEN. [Concomitant]
     Active Substance: IBUPROFEN
     Indication: VULVOVAGINAL INFLAMMATION
     Dosage: UNK
     Route: 065
  5. OSPHENA [Suspect]
     Active Substance: OSPEMIFENE
     Indication: VULVOVAGINAL PAIN
     Dosage: 60 MG, QD
     Route: 065
     Dates: start: 20170131

REACTIONS (1)
  - Headache [Recovered/Resolved]

NARRATIVE: CASE EVENT DATE: 20170131
